FAERS Safety Report 5700322-8 (Version None)
Quarter: 2008Q2

REPORT INFORMATION
  Report Type: 
  Country: None (occurrence: None)
  Receive Date: 20080410
  Receipt Date: 20080407
  Transmission Date: 20081010
  Serious: Yes (Other)
  Sender: FDA-Public Use
  Company Number: B0515434A

PATIENT
  Age: 77 Year
  Sex: Female
  Weight: 65 kg

DRUGS (11)
  1. ARIXTRA [Suspect]
     Indication: THROMBOSIS PROPHYLAXIS
     Dosage: 1.5MG PER DAY
     Route: 058
     Dates: start: 20080228, end: 20080312
  2. HYPEN [Concomitant]
     Dosage: 200MG TWICE PER DAY
     Route: 048
     Dates: start: 20080225, end: 20080313
  3. ROCALTROL [Concomitant]
     Dosage: .25MCG TWICE PER DAY
     Route: 048
     Dates: start: 20080225, end: 20080313
  4. SELBEX [Concomitant]
     Dosage: 50MG TWICE PER DAY
     Route: 048
     Dates: start: 20080225, end: 20080313
  5. GLUCOBAY [Concomitant]
     Dosage: 50MG PER DAY
     Route: 048
     Dates: end: 20080312
  6. FRANDOL S [Concomitant]
     Route: 062
     Dates: start: 20080225, end: 20080309
  7. ELCITONIN [Concomitant]
     Dates: start: 20080226, end: 20080226
  8. ELCITONIN [Concomitant]
     Dates: start: 20080304, end: 20080304
  9. ELCITONIN [Concomitant]
     Dates: start: 20080311, end: 20080311
  10. SIGMART [Concomitant]
     Route: 065
  11. YOUCOBAL [Concomitant]
     Route: 048

REACTIONS (6)
  - ALANINE AMINOTRANSFERASE INCREASED [None]
  - ASPARTATE AMINOTRANSFERASE INCREASED [None]
  - BLOOD ALKALINE PHOSPHATASE INCREASED [None]
  - BLOOD LACTATE DEHYDROGENASE INCREASED [None]
  - GAMMA-GLUTAMYLTRANSFERASE INCREASED [None]
  - HEPATIC FUNCTION ABNORMAL [None]
